FAERS Safety Report 21791179 (Version 1)
Quarter: 2022Q4

REPORT INFORMATION
  Report Type: Spontaneous
  Country: US (occurrence: None)
  Receive Date: 20221227
  Receipt Date: 20221227
  Transmission Date: 20230113
  Serious: Yes (Death)
  Sender: FDA-Public Use
  Company Number: None

PATIENT
  Sex: Female

DRUGS (1)
  1. TADALAFIL [Suspect]
     Active Substance: TADALAFIL
     Indication: Pulmonary arterial hypertension
     Dosage: 40MG ONCE DAILY PO
     Route: 048
     Dates: start: 202210

REACTIONS (4)
  - Hypotension [None]
  - Anaemia [None]
  - Diarrhoea [None]
  - Oesophageal obstruction [None]
